FAERS Safety Report 7861482-6 (Version None)
Quarter: 2011Q4

REPORT INFORMATION
  Report Type: 
  Country: None (occurrence: None)
  Receive Date: 20111027
  Receipt Date: 20111021
  Transmission Date: 20120403
  Serious: Yes (Hospitalization, Other)
  Sender: FDA-Public Use
  Company Number: US-TEVA-306112USA

PATIENT
  Sex: Male

DRUGS (2)
  1. CARVEDILOL [Concomitant]
     Indication: BLOOD PRESSURE MANAGEMENT
  2. COPAXONE [Suspect]
     Indication: MULTIPLE SCLEROSIS
     Dosage: 20 MILLIGRAM;
     Route: 058
     Dates: start: 20080101

REACTIONS (2)
  - RENAL FAILURE ACUTE [None]
  - FATIGUE [None]
